FAERS Safety Report 7542693-6 (Version None)
Quarter: 2011Q2

REPORT INFORMATION
  Report Type: 
  Country: None (occurrence: None)
  Receive Date: 20110606
  Receipt Date: 20110519
  Transmission Date: 20111010
  Serious: Yes (Death)
  Sender: FDA-Public Use
  Company Number: CIO11010020

PATIENT
  Age: 4 Year
  Sex: Female
  Weight: 16.5 kg

DRUGS (2)
  1. ASPIRIN [Suspect]
     Indication: PYREXIA
     Dosage: 325 MG, 1 ONLY, RECTAL
     Route: 054
  2. BISMUTH SUBSALICYLATE [Suspect]
     Dosage: 90 ML, 1 ONLY, ORAL
     Route: 048

REACTIONS (26)
  - CARDIO-RESPIRATORY ARREST [None]
  - BODY TEMPERATURE INCREASED [None]
  - USE OF ACCESSORY RESPIRATORY MUSCLES [None]
  - PULMONARY OEDEMA [None]
  - URINE OUTPUT DECREASED [None]
  - VOMITING [None]
  - PYREXIA [None]
  - TACHYCARDIA [None]
  - TOXICITY TO VARIOUS AGENTS [None]
  - DISORIENTATION [None]
  - ALVEOLAR OXYGEN PARTIAL PRESSURE INCREASED [None]
  - TACHYPNOEA [None]
  - RALES [None]
  - NASAL FLARING [None]
  - GRAND MAL CONVULSION [None]
  - CYANOSIS [None]
  - ACCIDENTAL DRUG INTAKE BY CHILD [None]
  - STUPOR [None]
  - BRAIN OEDEMA [None]
  - HEART RATE INCREASED [None]
  - BLOOD PH INCREASED [None]
  - LETHARGY [None]
  - BLOOD PRESSURE DECREASED [None]
  - PCO2 DECREASED [None]
  - CONFUSIONAL STATE [None]
  - HYPOXIA [None]
